FAERS Safety Report 6131455-2 (Version None)
Quarter: 2009Q1

REPORT INFORMATION
  Report Type: 
  Country: None (occurrence: None)
  Receive Date: 20090325
  Receipt Date: 20080717
  Transmission Date: 20090719
  Serious: Yes (Other)
  Sender: FDA-Public Use
  Company Number: US-BRISTOL-MYERS SQUIBB COMPANY-14268056

PATIENT

DRUGS (1)
  1. ERBITUX [Suspect]
     Indication: COLORECTAL CANCER METASTATIC
     Dosage: FIRST INFUSION: 12JUN08.
     Dates: start: 20080612, end: 20080612

REACTIONS (1)
  - OBSTRUCTIVE AIRWAYS DISORDER [None]
